FAERS Safety Report 8436453-1 (Version None)
Quarter: 2012Q2

REPORT INFORMATION
  Report Type: 
  Country: None (occurrence: None)
  Receive Date: 20120614
  Receipt Date: 20110417
  Transmission Date: 20120825
  Serious: No
  Sender: FDA-Public Use
  Company Number: US-NOVEN-11US002279

PATIENT
  Sex: Male
  Weight: 20.862 kg

DRUGS (7)
  1. ASTELIN [Concomitant]
     Indication: HYPERSENSITIVITY
     Dosage: 1 UNK, BID
     Route: 045
     Dates: start: 20110201
  2. DAYTRANA [Suspect]
     Indication: ATTENTION DEFICIT/HYPERACTIVITY DISORDER
     Dosage: 10 MG, QD
     Route: 062
     Dates: start: 20110416, end: 20110417
  3. ZYRTEC [Concomitant]
     Indication: HYPERSENSITIVITY
     Dosage: 5 MG, BID
     Route: 048
  4. NASONEX [Concomitant]
     Indication: HYPERSENSITIVITY
     Dosage: 1 UNK, QD
     Route: 045
     Dates: start: 20110201
  5. FLOVENT [Concomitant]
     Indication: ASTHMA
     Dosage: 44 UG, QD
     Route: 055
     Dates: start: 20080101
  6. PATADAY [Concomitant]
     Indication: HYPERSENSITIVITY
     Dosage: 1 UNK, BID
     Route: 047
     Dates: start: 20100101
  7. LOTEMAX [Concomitant]
     Indication: HYPERSENSITIVITY
     Dosage: 1 UNK, QD
     Route: 047
     Dates: start: 20101201

REACTIONS (6)
  - LOGORRHOEA [None]
  - EMOTIONAL DISTRESS [None]
  - MANIA [None]
  - BRUXISM [None]
  - CRYING [None]
  - DYSKINESIA [None]
